FAERS Safety Report 10203100 (Version 2)
Quarter: 2014Q2

REPORT INFORMATION
  Report Type: Report from Study
  Country: GB (occurrence: GB)
  Receive Date: 20140529
  Receipt Date: 20140619
  Transmission Date: 20141212
  Serious: Yes (Death, Hospitalization, Disabling, Other)
  Sender: FDA-Public Use
  Company Number: GB-ROCHE-1408824

PATIENT
  Age: 49 Year
  Sex: Male
  Weight: 107 kg

DRUGS (6)
  1. BEVACIZUMAB [Suspect]
     Indication: COLORECTAL CANCER METASTATIC
     Route: 065
     Dates: start: 20111107, end: 20121123
  2. OXALIPLATIN [Concomitant]
     Indication: COLORECTAL CANCER
     Route: 042
     Dates: start: 20110905, end: 20120223
  3. CAPECITABINE [Concomitant]
     Indication: COLORECTAL CANCER
     Dosage: DAY 1-14
     Route: 048
     Dates: start: 20110905, end: 20120223
  4. FENTANYL PATCH [Concomitant]
     Indication: PAIN
     Route: 050
     Dates: start: 201108
  5. AMLOPIPINE BENASE (UNK INGREDIENTS) [Concomitant]
     Indication: HYPERTENSION
     Route: 048
     Dates: start: 2009
  6. DOMPERIDONE [Concomitant]
     Route: 048
     Dates: start: 20120223, end: 20120228

REACTIONS (3)
  - Death [Fatal]
  - Nephritis [Unknown]
  - Renal failure acute [Recovering/Resolving]
